FAERS Safety Report 6618819-5 (Version None)
Quarter: 2010Q1

REPORT INFORMATION
  Report Type: 
  Country: None (occurrence: None)
  Receive Date: 20100304
  Receipt Date: 20100304
  Transmission Date: 20100710
  Serious: No
  Sender: FDA-Public Use
  Company Number: None

PATIENT
  Sex: Male

DRUGS (3)
  1. TYLENOL [Suspect]
     Indication: MULTIPLE SCLEROSIS
     Dosage: 2 PER DAY DAILY SWALLOW
     Route: 048
     Dates: start: 20091001, end: 20091201
  2. TYLENOL [Suspect]
     Indication: PAIN
     Dosage: 2 PER DAY DAILY SWALLOW
     Route: 048
     Dates: start: 20091001, end: 20091201
  3. TYLENOL [Suspect]
     Indication: TRIGEMINAL NEURALGIA
     Dosage: 2 PER DAY DAILY SWALLOW
     Route: 048
     Dates: start: 20091001, end: 20091201

REACTIONS (2)
  - DIARRHOEA [None]
  - PRODUCT CONTAMINATION [None]
